FAERS Safety Report 9347880 (Version 1)
Quarter: 2013Q2

REPORT INFORMATION
  Report Type: Spontaneous
  Country: FR (occurrence: FR)
  Receive Date: 20130614
  Receipt Date: 20130614
  Transmission Date: 20140414
  Serious: Yes (Hospitalization)
  Sender: FDA-Public Use
  Company Number: FR-009507513-1306FRA002895

PATIENT
  Age: 66 Year
  Sex: Male

DRUGS (5)
  1. EMEND [Suspect]
     Dosage: 125 MG, ONCE
     Route: 048
     Dates: start: 20130416
  2. POLARAMINE [Suspect]
     Dosage: 5 MG, ONCE
     Route: 040
     Dates: start: 20130416
  3. GEMCITABINE [Suspect]
     Dosage: UNK
     Route: 041
     Dates: start: 20130416
  4. SOLU-MEDROL [Suspect]
     Dosage: 80 MG, ONCE
     Route: 041
     Dates: start: 20130416
  5. ZOPHREN (ONDANSETRON HYDROCHLORIDE) [Suspect]
     Dosage: 8 MG, ONCE
     Route: 048
     Dates: start: 20130416

REACTIONS (1)
  - Epistaxis [Recovered/Resolved]
